FAERS Safety Report 17636436 (Version 1)
Quarter: 2020Q2

REPORT INFORMATION
  Report Type: Spontaneous
  Country: US (occurrence: US)
  Receive Date: 20200407
  Receipt Date: 20200407
  Transmission Date: 20200713
  Serious: No
  Sender: FDA-Public Use
  Company Number: US-BAYER-2020-057060

PATIENT
  Age: 84 Year
  Sex: Female

DRUGS (4)
  1. MIRALAX [Suspect]
     Active Substance: POLYETHYLENE GLYCOL 3350
     Indication: GASTROINTESTINAL DISORDER
     Route: 048
     Dates: start: 20200318, end: 20200320
  2. ASPIRIN (PAIN AND FEVER) [Concomitant]
     Active Substance: ASPIRIN
  3. MULTIVITAMINS [VITAMINS NOS] [Concomitant]
     Active Substance: VITAMINS
  4. LUTEINISING HORMONE (HUMAN) [Concomitant]
     Active Substance: LUTROPIN ALFA

REACTIONS (5)
  - Product use issue [Unknown]
  - Dehydration [Recovered/Resolved]
  - Diarrhoea [Recovered/Resolved]
  - Off label use [Unknown]
  - Dizziness [Recovered/Resolved]
